FAERS Safety Report 5239018-8 (Version None)
Quarter: 2007Q1

REPORT INFORMATION
  Report Type: 
  Country: None (occurrence: None)
  Receive Date: 20061208
  Receipt Date: 20050611
  Transmission Date: 20070707
  Serious: Yes (Other)
  Sender: FDA-Public Use
  Company Number: 2005UW09118

PATIENT
  Age: 64 Year
  Sex: Male

DRUGS (4)
  1. CRESTOR [Suspect]
     Dosage: 40 MG DAILY PO
     Route: 048
     Dates: start: 20020101
  2. CRESTOR [Suspect]
     Dosage: 10 MG PO
     Route: 048
     Dates: start: 20030101
  3. NEXIUM [Concomitant]
  4. PLAVIX [Concomitant]

REACTIONS (2)
  - BLOOD TRIGLYCERIDES INCREASED [None]
  - WEIGHT INCREASED [None]
